FAERS Safety Report 16352362 (Version 1)
Quarter: 2019Q2

REPORT INFORMATION
  Report Type: Spontaneous
  Country: US (occurrence: US)
  Receive Date: 20190524
  Receipt Date: 20190524
  Transmission Date: 20190711
  Serious: No
  Sender: FDA-Public Use
  Company Number: US-ASTRAZENECA-2019SE66374

PATIENT
  Sex: Female

DRUGS (1)
  1. BEVESPI AEROSPHERE [Suspect]
     Active Substance: FORMOTEROL FUMARATE\GLYCOPYRROLATE
     Dosage: 9/4.8 MCG 2 PUFFS MY MOUTH TWICE DAILY
     Route: 055
     Dates: start: 201812

REACTIONS (4)
  - Wheezing [Unknown]
  - Device malfunction [Unknown]
  - Product dose omission [Unknown]
  - Intentional device misuse [Unknown]
